FAERS Safety Report 9249482 (Version 8)
Quarter: 2016Q3

REPORT INFORMATION
  Report Type: Report from Study
  Country: US (occurrence: US)
  Receive Date: 20130423
  Receipt Date: 20160725
  Transmission Date: 20161109
  Serious: Yes (Hospitalization, Other)
  Sender: FDA-Public Use
  Company Number: US-ACTELION-A-US2013-82151

PATIENT
  Age: 59 Year
  Sex: Female

DRUGS (4)
  1. TRACLEER [Suspect]
     Active Substance: BOSENTAN
     Dosage: 125 MG, BID
     Route: 048
  2. SILDENAFIL. [Concomitant]
     Active Substance: SILDENAFIL
  3. NORVASC [Concomitant]
     Active Substance: AMLODIPINE BESYLATE
  4. TRACLEER [Suspect]
     Active Substance: BOSENTAN
     Indication: PULMONARY ARTERIAL HYPERTENSION
     Dosage: UNK UNK,
     Route: 048
     Dates: start: 20120116

REACTIONS (20)
  - Hypersensitivity [Unknown]
  - Renal disorder [Unknown]
  - Bladder disorder [Unknown]
  - Foot fracture [Unknown]
  - Dyspnoea [Unknown]
  - Dyspnoea exertional [Unknown]
  - Weight increased [Unknown]
  - Blood urine present [Unknown]
  - Cystitis interstitial [Unknown]
  - Anaemia [Unknown]
  - Mastectomy [Unknown]
  - Breast reconstruction [Unknown]
  - Chest pain [Unknown]
  - Oedema [Unknown]
  - Swelling face [Unknown]
  - Drug hypersensitivity [Unknown]
  - Breast operation [Unknown]
  - Breast cancer [Unknown]
  - Fall [Unknown]
  - Syncope [Unknown]
